FAERS Safety Report 5533048-4 (Version None)
Quarter: 2007Q4

REPORT INFORMATION
  Report Type: 
  Country: None (occurrence: None)
  Receive Date: 20071120
  Receipt Date: 20071015
  Transmission Date: 20080405
  Serious: No
  Sender: FDA-Public Use
  Company Number: WAES 0710USA03318

PATIENT
  Age: 40 Year
  Sex: Male

DRUGS (3)
  1. JANUVIA [Suspect]
     Indication: DIABETES MELLITUS
     Dosage: 100 MG/DAILY/PO
     Route: 048
     Dates: start: 20071009
  2. DIURETIC (UNSPECIFIED) UNK [Suspect]
  3. [THERAPY UNSPECIFIED] UNK [Suspect]

REACTIONS (1)
  - HEADACHE [None]
